FAERS Safety Report 23889781 (Version 3)
Quarter: 2024Q2

REPORT INFORMATION
  Report Type: Report from Study
  Country: CA (occurrence: CA)
  Receive Date: 20240523
  Receipt Date: 20240529
  Transmission Date: 20240716
  Serious: Yes (Hospitalization, Other)
  Sender: FDA-Public Use
  Company Number: CA-TEVA-VS-3177080

PATIENT
  Age: 47 Year
  Sex: Female

DRUGS (6)
  1. AJOVY [Suspect]
     Active Substance: FREMANEZUMAB-VFRM
     Indication: Migraine prophylaxis
     Route: 058
     Dates: start: 20240304
  2. AJOVY [Suspect]
     Active Substance: FREMANEZUMAB-VFRM
     Dosage: LAST DOSE ADMINISTERED DATE 03-MAY-2024
     Route: 058
     Dates: start: 20240304, end: 20240503
  3. RIZATRIPTAN [Concomitant]
     Active Substance: RIZATRIPTAN
  4. VENLAFAXINE [Concomitant]
     Active Substance: VENLAFAXINE HYDROCHLORIDE
  5. AMITRIPTYLINE [Concomitant]
     Active Substance: AMITRIPTYLINE
  6. NORTRIPTYLINE [Concomitant]
     Active Substance: NORTRIPTYLINE

REACTIONS (18)
  - Anxiety [Unknown]
  - Injection site bruising [Recovering/Resolving]
  - Injection site pain [Unknown]
  - Injection site warmth [Unknown]
  - Skin infection [Unknown]
  - Injection site cellulitis [Unknown]
  - Injection site rash [Unknown]
  - Injection site erythema [Unknown]
  - Inappropriate schedule of product administration [Unknown]
  - Injection site swelling [Not Recovered/Not Resolved]
  - Sensitive skin [Unknown]
  - Nervousness [Unknown]
  - Injection site discolouration [Recovering/Resolving]
  - Wrong technique in product usage process [Unknown]
  - Pyrexia [Unknown]
  - Injection site vesicles [Unknown]
  - Peripheral swelling [Unknown]
  - Gait inability [Unknown]

NARRATIVE: CASE EVENT DATE: 20240304
